FAERS Safety Report 12585663 (Version 1)
Quarter: 2016Q3

REPORT INFORMATION
  Report Type: Report from Study
  Country: US (occurrence: US)
  Receive Date: 20160725
  Receipt Date: 20160725
  Transmission Date: 20161109
  Serious: No
  Sender: FDA-Public Use
  Company Number: US-AMGEN-USASL2016094675

PATIENT
  Age: 62 Year
  Sex: Female

DRUGS (1)
  1. ENBREL [Suspect]
     Active Substance: ETANERCEPT
     Indication: ANKYLOSING SPONDYLITIS
     Dosage: UNK UNK, UNK
     Route: 065

REACTIONS (6)
  - Erythema [Unknown]
  - Skin exfoliation [Unknown]
  - Hypersensitivity [Unknown]
  - Spinal disorder [Unknown]
  - Sinus polyp [Unknown]
  - Fungal infection [Unknown]
